FAERS Safety Report 6686999-1 (Version None)
Quarter: 2010Q2

REPORT INFORMATION
  Report Type: 
  Country: None (occurrence: None)
  Receive Date: 20100419
  Receipt Date: 20100407
  Transmission Date: 20101027
  Serious: Yes (Hospitalization)
  Sender: FDA-Public Use
  Company Number: JP-PFIZER INC-2010036262

PATIENT
  Age: 77 Year
  Sex: Female
  Weight: 41 kg

DRUGS (4)
  1. SUNITINIB MALATE [Suspect]
     Indication: GASTROINTESTINAL STROMAL TUMOUR
     Dosage: UNK
     Route: 048
  2. LAC B [Concomitant]
     Dosage: UNK
     Route: 048
     Dates: start: 20090430
  3. ATELEC [Concomitant]
     Dosage: UNK
     Route: 048
     Dates: start: 20090502
  4. EXCELASE [Concomitant]
     Dosage: UNK
     Route: 048

REACTIONS (4)
  - ASCITES [None]
  - PLATELET COUNT DECREASED [None]
  - PLEURAL EFFUSION [None]
  - PYREXIA [None]
